FAERS Safety Report 21558368 (Version 3)
Quarter: 2023Q2

REPORT INFORMATION
  Report Type: Spontaneous
  Country: JP (occurrence: JP)
  Receive Date: 20221107
  Receipt Date: 20230605
  Transmission Date: 20230721
  Serious: Yes (Hospitalization, Other)
  Sender: FDA-Public Use
  Company Number: JP-MSD-M2022-46936

PATIENT
  Age: 8 Decade
  Sex: Male

DRUGS (4)
  1. PIFELTRO [Suspect]
     Active Substance: DORAVIRINE
     Indication: HIV infection
     Dosage: 100 MILLIGRAM, QD
     Route: 048
     Dates: start: 20211216, end: 20221025
  2. PIFELTRO [Suspect]
     Active Substance: DORAVIRINE
     Dosage: 100 MILLIGRAM, BID
     Route: 048
     Dates: start: 20221026, end: 20221113
  3. PIFELTRO [Suspect]
     Active Substance: DORAVIRINE
     Dosage: 100 MILLIGRAM, QD
     Route: 048
     Dates: start: 20221114
  4. TIVICAY [Suspect]
     Active Substance: DOLUTEGRAVIR SODIUM
     Indication: HIV infection
     Dosage: 50 MILLIGRAM, QD
     Route: 048
     Dates: start: 20211216

REACTIONS (3)
  - Tuberculosis [Recovering/Resolving]
  - Immune reconstitution inflammatory syndrome [Unknown]
  - Prescribed overdose [Unknown]

NARRATIVE: CASE EVENT DATE: 20221001
